FAERS Safety Report 7335973-0 (Version None)
Quarter: 2011Q1

REPORT INFORMATION
  Report Type: 
  Country: None (occurrence: None)
  Receive Date: 20110307
  Receipt Date: 20110228
  Transmission Date: 20110831
  Serious: Yes (Death)
  Sender: FDA-Public Use
  Company Number: CA-GENZYME-FLUD-1000818

PATIENT

DRUGS (14)
  1. RED BLOOD CELLS [Concomitant]
     Indication: ANAEMIA PROPHYLAXIS
     Dosage: UNK
     Route: 042
  2. METHOTREXATE [Concomitant]
     Indication: PROPHYLAXIS AGAINST GRAFT VERSUS HOST DISEASE
     Dosage: 16 MG/M2, ONCE ON DAY ONE
     Route: 042
  3. BUSULFAN [Suspect]
     Indication: SURGICAL PRECONDITIONING
     Dosage: 3.2 MG/KG, QD ON DAYS -5 TO -2
     Route: 042
  4. FLUDARA [Suspect]
     Indication: SURGICAL PRECONDITIONING
     Dosage: 50 MG/M2, QD ON DAYS -6 TO -2
     Route: 065
  5. THYMOGLOBULIN [Concomitant]
     Indication: SURGICAL PRECONDITIONING
     Dosage: 0.5 MG/KG, ONCE
     Route: 042
  6. PLATELETS [Concomitant]
     Indication: PROPHYLAXIS
     Dosage: UNK
     Route: 042
  7. FOLINIC ACID [Concomitant]
     Indication: PROPHYLAXIS AGAINST GRAFT VERSUS HOST DISEASE
     Dosage: 5 MG, UNK, STARTED 24 HRS AFTER EACH MTX DOSE
     Route: 065
  8. BENADRYL [Concomitant]
     Indication: PREMEDICATION
     Dosage: 50 MG, UNK, DOSE DESCRIPTION: BEFORE EACH DOSE OF ATG
     Route: 042
  9. CIPROFLOXACIN [Concomitant]
     Indication: ANTIBIOTIC PROPHYLAXIS
     Dosage: 500 MG, BID UNTIL 2003
     Route: 065
  10. METHYLPREDNISOLONE [Concomitant]
     Indication: PREMEDICATION
     Dosage: 40 MG, BID X 3 DAYS
     Route: 042
  11. THYMOGLOBULIN [Concomitant]
     Dosage: 2 MG/KG, QD X 2
     Route: 042
  12. TRIMETHOPRIM + SULFAMETHOXAZOLE [Concomitant]
     Indication: ANTIFUNGAL PROPHYLAXIS
     Dosage: UNK
     Route: 065
  13. CYCLOSPORINE [Concomitant]
     Indication: PROPHYLAXIS AGAINST GRAFT VERSUS HOST DISEASE
     Dosage: UNK, TO MAINTAIN A BLOOD LEVEL BETWEEN 150 TO 400 UMOL/L
     Route: 065
  14. METHOTREXATE [Concomitant]
     Dosage: 10 MG/M2, UNK, ON DAYS 3,6,11
     Route: 042

REACTIONS (1)
  - VENOOCCLUSIVE DISEASE [None]
